FAERS Safety Report 6916888-6 (Version None)
Quarter: 2010Q3

REPORT INFORMATION
  Report Type: 
  Country: None (occurrence: None)
  Receive Date: 20100810
  Receipt Date: 20100803
  Transmission Date: 20110219
  Serious: Yes (Other)
  Sender: FDA-Public Use
  Company Number: US-JNJFOC-20100705099

PATIENT
  Sex: Female
  Weight: 61.69 kg

DRUGS (3)
  1. LEVAQUIN [Suspect]
     Indication: PHARYNGITIS STREPTOCOCCAL
     Route: 048
  2. PRILOSEC [Concomitant]
     Indication: GASTROOESOPHAGEAL REFLUX DISEASE
     Route: 048
  3. SYNTHROID [Concomitant]
     Indication: HYPOTHYROIDISM
     Route: 048

REACTIONS (6)
  - AUTOIMMUNE DISORDER [None]
  - BACK PAIN [None]
  - BEDRIDDEN [None]
  - HYPOKINESIA [None]
  - PAIN [None]
  - PAIN IN EXTREMITY [None]
